FAERS Safety Report 4572845-9 (Version None)
Quarter: 2005Q1

REPORT INFORMATION
  Report Type: 
  Country: None (occurrence: None)
  Receive Date: 20050208
  Receipt Date: 20040709
  Transmission Date: 20050727
  Serious: No
  Sender: FDA-Public Use
  Company Number: US-GLAXOSMITHKLINE-A0517696A

PATIENT
  Age: 65 Year
  Sex: Female

DRUGS (3)
  1. PAXIL [Suspect]
     Indication: OBSESSIVE-COMPULSIVE DISORDER
     Dosage: 40MG PER DAY
     Route: 048
     Dates: end: 20040630
  2. LAMICTAL [Suspect]
     Indication: NEUROPATHY PERIPHERAL
     Route: 048
  3. ZOLOFT [Concomitant]

REACTIONS (9)
  - CRYING [None]
  - HOT FLUSH [None]
  - HYPERAESTHESIA [None]
  - HYPERHIDROSIS [None]
  - HYPOAESTHESIA [None]
  - LETHARGY [None]
  - NAUSEA [None]
  - PAIN IN EXTREMITY [None]
  - WEIGHT INCREASED [None]
